FAERS Safety Report 17343140 (Version 7)
Quarter: 2020Q4

REPORT INFORMATION
  Report Type: Spontaneous
  Country: US (occurrence: US)
  Receive Date: 20200129
  Receipt Date: 20201231
  Transmission Date: 20210113
  Serious: Yes (Other)
  Sender: FDA-Public Use
  Company Number: US-VERTEX PHARMACEUTICALS-2020-001259

PATIENT
  Age: 34 Year
  Sex: Male
  Weight: 43 kg

DRUGS (23)
  1. FLUTICASONE. [Concomitant]
     Active Substance: FLUTICASONE
  2. KITABIS PAK [Concomitant]
     Active Substance: TOBRAMYCIN
     Dosage: UNK, BID
  3. ZOSYN [Concomitant]
     Active Substance: PIPERACILLIN SODIUM\TAZOBACTAM SODIUM
  4. LANTUS [Concomitant]
     Active Substance: INSULIN GLARGINE
     Route: 058
  5. NOVOLOG [Concomitant]
     Active Substance: INSULIN ASPART
     Dosage: 100 UNITS/ML
  6. TRIKAFTA [Suspect]
     Active Substance: ELEXACAFTOR\IVACAFTOR\TEZACAFTOR
     Dosage: MORNING DOSE
     Route: 048
     Dates: start: 202003, end: 20200313
  7. LORATADINE. [Concomitant]
     Active Substance: LORATADINE
     Dosage: 1 TABLET QD
     Route: 048
  8. VITAMIN D2 [Concomitant]
     Active Substance: ERGOCALCIFEROL
     Dosage: 50,000 UNIT CAPSULE
     Route: 048
  9. FERROUS FUMARATE [Concomitant]
     Active Substance: FERROUS FUMARATE
     Dosage: 1 TAB, BID
     Route: 048
  10. TRIKAFTA [Suspect]
     Active Substance: ELEXACAFTOR\IVACAFTOR\TEZACAFTOR
     Indication: CYSTIC FIBROSIS
     Dosage: ELEXACAFTOR 100 MG, TEZACAFTOR 50 MG, IVACAFTOR 75 MG; IVACAFTOR 150 MG TABLETS, BID
     Route: 048
     Dates: start: 20200113, end: 2020
  11. LISINOPRIL. [Concomitant]
     Active Substance: LISINOPRIL
     Dosage: 5 MG, QD
     Route: 048
  12. XOPENEX [Concomitant]
     Active Substance: LEVALBUTEROL HYDROCHLORIDE
     Dosage: 5 REFILLS, QD
  13. TRIKAFTA [Suspect]
     Active Substance: ELEXACAFTOR\IVACAFTOR\TEZACAFTOR
     Dosage: 1 BLUE TABLET AM AND 2 ORANGE TABLETS PM
     Route: 048
     Dates: start: 2020
  14. SODIUM CHLORIDE. [Concomitant]
     Active Substance: SODIUM CHLORIDE
     Dosage: UNK
  15. BACTRIM DS [Concomitant]
     Active Substance: SULFAMETHOXAZOLE\TRIMETHOPRIM
     Dosage: 800- 160 MG, 1 TABLET, BID
     Route: 048
  16. SYMBICORT [Concomitant]
     Active Substance: BUDESONIDE\FORMOTEROL FUMARATE DIHYDRATE
     Dosage: 160 MCG-4.5MCG/INH
  17. ZENPEP [Concomitant]
     Active Substance: PANCRELIPASE AMYLASE\PANCRELIPASE LIPASE\PANCRELIPASE PROTEASE
     Dosage: 25,000 UNTS-79,000 UNITS- 105,000 UNITS ORAL DELAYED RELEASE CAPSULE
  18. TRIKAFTA [Suspect]
     Active Substance: ELEXACAFTOR\IVACAFTOR\TEZACAFTOR
     Dosage: UNK
     Route: 048
     Dates: start: 2020, end: 2020
  19. AZITHROMYCIN ANHYDROUS. [Concomitant]
     Active Substance: AZITHROMYCIN ANHYDROUS
  20. PULMOZYME [Concomitant]
     Active Substance: DORNASE ALFA
  21. ALBUTEROL [SALBUTAMOL] [Concomitant]
     Active Substance: ALBUTEROL
     Dosage: 2 PUFF
  22. HYPERTONIC SALINE SOLUTION [Concomitant]
     Active Substance: SODIUM CHLORIDE
     Dosage: UNK, BID
  23. INSULIN ASPART [Concomitant]
     Active Substance: INSULIN ASPART
     Dosage: 100 UNITS/ ML, PRN

REACTIONS (10)
  - Dizziness [Not Recovered/Not Resolved]
  - Depression [Unknown]
  - Deep vein thrombosis [Unknown]
  - Feeling abnormal [Unknown]
  - Headache [Unknown]
  - Gastrointestinal ulcer [Unknown]
  - Epistaxis [Unknown]
  - Confusional state [Not Recovered/Not Resolved]
  - Paranasal sinus discomfort [Unknown]
  - Fatigue [Recovering/Resolving]

NARRATIVE: CASE EVENT DATE: 2020
